FAERS Safety Report 7108576-0 (Version None)
Quarter: 2010Q4

REPORT INFORMATION
  Report Type: 
  Country: None (occurrence: None)
  Receive Date: 20101117
  Receipt Date: 20101014
  Transmission Date: 20110411
  Serious: No
  Sender: FDA-Public Use
  Company Number: A0886825A

PATIENT

DRUGS (1)
  1. VOTRIENT [Suspect]
     Dosage: 600MG PER DAY
     Dates: start: 20101006

REACTIONS (1)
  - DECREASED APPETITE [None]
